FAERS Safety Report 4911828-3 (Version None)
Quarter: 2006Q1

REPORT INFORMATION
  Report Type: 
  Country: None (occurrence: None)
  Receive Date: 20060213
  Receipt Date: 20060213
  Transmission Date: 20060701
  Serious: Yes (Hospitalization)
  Sender: FDA-Public Use
  Company Number: None

PATIENT
  Age: 55 Year
  Sex: Female
  Weight: 60 kg

DRUGS (8)
  1. DOCETAXEL [Suspect]
     Indication: BREAST CANCER
     Dosage: Q 3 WEEKS   IV
     Route: 042
     Dates: start: 20051024
  2. DOXORUBICIN [Suspect]
     Indication: BREAST CANCER
     Dosage: Q 3 WKS   IV
     Route: 042
     Dates: start: 20051024
  3. CYTOXAN [Suspect]
     Indication: BREAST CANCER
     Dosage: Q 3 WKS  IV
     Route: 042
     Dates: start: 20051024
  4. BEVACIZUMAB [Suspect]
     Indication: BREAST CANCER
     Dosage: 15 MG /KG   Q 3 WKS  IV
     Route: 042
     Dates: start: 20051024
  5. PLACEBO [Suspect]
  6. DECADRON SRC [Concomitant]
  7. ZOFRAN [Concomitant]
  8. NEUPOGEN [Concomitant]

REACTIONS (4)
  - DIZZINESS [None]
  - FATIGUE [None]
  - FEBRILE NEUTROPENIA [None]
  - WHITE BLOOD CELL COUNT DECREASED [None]
